FAERS Safety Report 19306796 (Version 2)
Quarter: 2021Q2

REPORT INFORMATION
  Report Type: Spontaneous
  Country: US (occurrence: US)
  Receive Date: 20210525
  Receipt Date: 20210527
  Transmission Date: 20210717
  Serious: No
  Sender: FDA-Public Use
  Company Number: US-009507513-2104USA008913

PATIENT
  Sex: Female

DRUGS (4)
  1. SIVEXTRO [Suspect]
     Active Substance: TEDIZOLID PHOSPHATE
     Indication: MYCOBACTERIUM ABSCESSUS INFECTION
     Dosage: 200 MG ONCE DAILY BY MOUTH
     Route: 048
     Dates: end: 20191217
  2. CLOFAZIMINE [Suspect]
     Active Substance: CLOFAZIMINE
  3. ARIKAYCE [Suspect]
     Active Substance: AMIKACIN
     Dosage: UNK
  4. AMIKACIN. [Suspect]
     Active Substance: AMIKACIN

REACTIONS (3)
  - Drug intolerance [Unknown]
  - Product use in unapproved indication [Unknown]
  - Tinnitus [Unknown]
